FAERS Safety Report 25123867 (Version 1)
Quarter: 2025Q1

REPORT INFORMATION
  Report Type: Spontaneous
  Country: US (occurrence: US)
  Receive Date: 20250326
  Receipt Date: 20250326
  Transmission Date: 20250409
  Serious: Yes (Other)
  Sender: ROCHE
  Company Number: US-ROCHE-10000233250

PATIENT
  Age: 56 Year
  Sex: Male

DRUGS (1)
  1. ACTEMRA ACTPEN [Suspect]
     Active Substance: TOCILIZUMAB
     Indication: Rheumatoid arthritis
     Route: 058

REACTIONS (8)
  - Gastrointestinal disorder [Unknown]
  - Intestinal obstruction [Unknown]
  - Dysuria [Unknown]
  - Haemorrhoids [Unknown]
  - Cardiac disorder [Unknown]
  - Cardiac failure [Unknown]
  - Nodule [Unknown]
  - Rheumatoid arthritis [Unknown]
